FAERS Safety Report 24048789 (Version 1)
Quarter: 2024Q3

REPORT INFORMATION
  Report Type: Spontaneous
  Country: AR (occurrence: AR)
  Receive Date: 20240704
  Receipt Date: 20240704
  Transmission Date: 20241016
  Serious: Yes (Life-Threatening, Hospitalization, Other)
  Sender: EMD SERONO INC
  Company Number: AR-Merck Healthcare KGaA-2024035486

PATIENT
  Age: 45 Year
  Sex: Male

DRUGS (2)
  1. MAVENCLAD [Suspect]
     Active Substance: CLADRIBINE
     Indication: Multiple sclerosis
     Dosage: FIRST COURSE THERAPY
  2. MAVENCLAD [Suspect]
     Active Substance: CLADRIBINE
     Dosage: SECOND COURSE THERAPY

REACTIONS (18)
  - Anaphylactic shock [Unknown]
  - Pneumonia [Unknown]
  - Chest X-ray abnormal [Unknown]
  - Cough [Unknown]
  - Pyrexia [Unknown]
  - Hypoxia [Unknown]
  - Purpura [Unknown]
  - Autoimmune disorder [Unknown]
  - Blood urea decreased [Unknown]
  - Neutrophil percentage increased [Unknown]
  - Haemoglobin decreased [Unknown]
  - Blood creatinine decreased [Unknown]
  - White blood cell count increased [Unknown]
  - Monocyte count decreased [Unknown]
  - Basophil count decreased [Unknown]
  - Blood albumin decreased [Unknown]
  - Lymphocyte count decreased [Unknown]
  - Alanine aminotransferase increased [Unknown]
